FAERS Safety Report 7861741-7 (Version None)
Quarter: 2011Q4

REPORT INFORMATION
  Report Type: 
  Country: None (occurrence: None)
  Receive Date: 20111027
  Receipt Date: 20110928
  Transmission Date: 20120403
  Serious: Yes (Other)
  Sender: FDA-Public Use
  Company Number: CO-ROCHE-GNE319948

PATIENT
  Sex: Female

DRUGS (3)
  1. LUCENTIS [Suspect]
     Dosage: 0.5 MG, 1/MONTH
     Route: 050
     Dates: start: 20100818
  2. LUCENTIS [Suspect]
     Dosage: 0.5 MG, 1/MONTH
     Route: 050
     Dates: start: 20100721
  3. LUCENTIS [Suspect]
     Indication: AGE-RELATED MACULAR DEGENERATION
     Dosage: 0.5 MG, 1/MONTH
     Route: 050
     Dates: start: 20100623

REACTIONS (1)
  - RASH GENERALISED [None]
